FAERS Safety Report 21818717 (Version 1)
Quarter: 2023Q1

REPORT INFORMATION
  Report Type: Spontaneous
  Country: US (occurrence: None)
  Receive Date: 20230104
  Receipt Date: 20230104
  Transmission Date: 20230418
  Serious: No
  Sender: FDA-Public Use
  Company Number: None

PATIENT
  Age: 58 Year
  Sex: Female

DRUGS (11)
  1. BENLYSTA [Suspect]
     Active Substance: BELIMUMAB
     Indication: Systemic lupus erythematosus
     Dosage: OTHER FREQUENCY : WEEKLY;?
     Route: 058
     Dates: start: 20221209, end: 20221223
  2. magnesium 200 mg [Concomitant]
  3. CELEBREX [Concomitant]
     Active Substance: CELECOXIB
  4. CEVIMELINE [Concomitant]
     Active Substance: CEVIMELINE
  5. hydroxyzine 50 mg [Concomitant]
  6. IMURAN [Concomitant]
     Active Substance: AZATHIOPRINE
  7. NORCO [Concomitant]
     Active Substance: ACETAMINOPHEN\HYDROCODONE BITARTRATE
  8. OMEPRAZOLE [Concomitant]
     Active Substance: OMEPRAZOLE
  9. PLAQUENIL [Concomitant]
     Active Substance: HYDROXYCHLOROQUINE SULFATE
  10. TIZANIDINE [Concomitant]
     Active Substance: TIZANIDINE
  11. CHOLECALCIFEROL [Concomitant]
     Active Substance: CHOLECALCIFEROL

REACTIONS (3)
  - Fibromyalgia [None]
  - Systemic lupus erythematosus [None]
  - Condition aggravated [None]

NARRATIVE: CASE EVENT DATE: 20221209
